FAERS Safety Report 18133129 (Version 6)
Quarter: 2020Q4

REPORT INFORMATION
  Report Type: Spontaneous
  Country: US (occurrence: US)
  Receive Date: 20200811
  Receipt Date: 20201218
  Transmission Date: 20210113
  Serious: Yes (Other)
  Sender: FDA-Public Use
  Company Number: US-GLAXOSMITHKLINE-US2020AMR153713

PATIENT
  Sex: Female

DRUGS (4)
  1. ZEJULA [Suspect]
     Active Substance: NIRAPARIB
     Dosage: 100 MG, QD
     Route: 048
     Dates: start: 202010, end: 20201202
  2. ZEJULA [Suspect]
     Active Substance: NIRAPARIB
     Indication: OVARIAN CANCER
     Dosage: 100 MG, QD
     Route: 048
     Dates: start: 20200706
  3. PROMACTIL [Concomitant]
     Indication: PRODUCT USED FOR UNKNOWN INDICATION
     Dosage: UNK
  4. ZEJULA [Suspect]
     Active Substance: NIRAPARIB
     Dosage: 100 MG, QD
     Route: 048
     Dates: start: 20201203

REACTIONS (15)
  - Abdominal discomfort [Unknown]
  - Off label use [Unknown]
  - Abdominal distension [Unknown]
  - Joint stiffness [Unknown]
  - Back pain [Not Recovered/Not Resolved]
  - Platelet count decreased [Not Recovered/Not Resolved]
  - Hepatic cirrhosis [Unknown]
  - Diarrhoea [Unknown]
  - Musculoskeletal stiffness [Not Recovered/Not Resolved]
  - Paraesthesia [Unknown]
  - Gastric dilatation [Unknown]
  - Weight increased [Unknown]
  - Product dose omission issue [Unknown]
  - Nausea [Unknown]
  - Myalgia [Unknown]
